FAERS Safety Report 10084768 (Version 1)
Quarter: 2014Q2

REPORT INFORMATION
  Report Type: Report from Study
  Country: IT (occurrence: IT)
  Receive Date: 20140417
  Receipt Date: 20140417
  Transmission Date: 20141212
  Serious: Yes (Hospitalization)
  Sender: FDA-Public Use
  Company Number: IT-AMGEN INC.-ITACT2014026494

PATIENT
  Age: 26 Year
  Sex: Male

DRUGS (8)
  1. PEGFILGRASTIM [Suspect]
     Indication: LYMPHOMA
     Dosage: 6 MG, UNK
     Route: 058
     Dates: start: 20090615
  2. CISPLATIN [Concomitant]
     Dosage: 160 MG, UNK
     Route: 042
     Dates: start: 20090612, end: 20090614
  3. METHYLPREDNISOLONE [Concomitant]
  4. ETOPOSIDE                          /00511902/ [Concomitant]
     Dosage: UNK
     Route: 042
     Dates: start: 20090612, end: 20090914
  5. CYTARABINE [Concomitant]
     Dosage: UNK
     Route: 042
     Dates: start: 20090612, end: 20090914
  6. ARA-C [Concomitant]
     Dosage: UNK
     Dates: start: 20090612, end: 20090614
  7. CARBOPLATIN [Concomitant]
     Dosage: UNK
     Route: 042
     Dates: start: 20090612, end: 20090614
  8. OMEPRAZOLE [Concomitant]
     Dosage: 20 MG, UNK
     Route: 048
     Dates: start: 20090612, end: 20090622

REACTIONS (1)
  - Febrile neutropenia [Recovered/Resolved]
